FAERS Safety Report 8115462-6 (Version None)
Quarter: 2012Q1

REPORT INFORMATION
  Report Type: 
  Country: None (occurrence: None)
  Receive Date: 20120206
  Receipt Date: 20120127
  Transmission Date: 20120608
  Serious: Yes (Hospitalization)
  Sender: FDA-Public Use
  Company Number: JP-TEVA-2011006005

PATIENT
  Sex: Male
  Weight: 65.4 kg

DRUGS (9)
  1. BENDAMUSTINE [Suspect]
     Indication: B-CELL LYMPHOMA
     Dosage: 120 MG/M2;
     Route: 042
     Dates: start: 20110120
  2. AMINO ACIDS NOS W/CARBOHYD. NOS/ELECTROL. NOS [Suspect]
     Indication: PROPHYLAXIS
     Dosage: 1000 MILLIGRAM;
     Route: 042
  3. VALACYCLOVIR HYDROCHLORIDE [Concomitant]
  4. SULFAMETHOXAZOLE AND TRIMETHOPRIM [Concomitant]
     Dates: start: 20110129
  5. MORPHINE [Concomitant]
  6. OXYCODONE HYDROCHLORIDE [Concomitant]
  7. LENOGRASTIM [Concomitant]
     Dates: start: 20110122
  8. ALLOPURINOL [Concomitant]
     Indication: PROPHYLAXIS
  9. PREGABALIN [Concomitant]
     Dates: end: 20110126

REACTIONS (5)
  - LYMPHOCYTE COUNT DECREASED [None]
  - FEBRILE NEUTROPENIA [None]
  - BLOOD CREATININE INCREASED [None]
  - BLOOD POTASSIUM DECREASED [None]
  - CLOSTRIDIUM COLITIS [None]
